FAERS Safety Report 4366156-4 (Version None)
Quarter: 2004Q2

REPORT INFORMATION
  Report Type: 
  Country: None (occurrence: None)
  Receive Date: 20040526
  Receipt Date: 20040526
  Transmission Date: 20050107
  Serious: No
  Sender: FDA-Public Use
  Company Number: None

PATIENT
  Age: 83 Year
  Sex: Male
  Weight: 75.7 kg

DRUGS (13)
  1. RISPERIDONE [Suspect]
     Indication: DEMENTIA ALZHEIMER'S TYPE
     Dosage: 1 MG Q12H ORAL
     Route: 048
     Dates: start: 20040223, end: 20040224
  2. LORTAB [Concomitant]
  3. LEVOTHYROXINE SODIUM [Concomitant]
  4. KCL TAB [Concomitant]
  5. THIAMINE [Concomitant]
  6. BISACODYL [Concomitant]
  7. MULTI-VIT [Concomitant]
  8. ZOLOFT [Concomitant]
  9. ALBUTEROL [Concomitant]
  10. MAALOX [Concomitant]
  11. MOM [Concomitant]
  12. NYSTATIN [Concomitant]
  13. PROTONIX [Concomitant]

REACTIONS (1)
  - ELECTROCARDIOGRAM QT CORRECTED INTERVAL PROLONGED [None]
